FAERS Safety Report 11434708 (Version 1)
Quarter: 2015Q3

REPORT INFORMATION
  Report Type: Spontaneous
  Country: PT (occurrence: PT)
  Receive Date: 20150831
  Receipt Date: 20150831
  Transmission Date: 20151125
  Serious: Yes (Life-Threatening, Hospitalization, Other)
  Sender: FDA-Public Use
  Company Number: PT-PFIZER INC-2015287874

PATIENT
  Age: 74 Year
  Sex: Female

DRUGS (8)
  1. INDACATEROL [Concomitant]
     Active Substance: INDACATEROL
     Dosage: UNK
     Route: 055
  2. ALENDRONIC ACID [Concomitant]
     Active Substance: ALENDRONIC ACID
     Dosage: UNK
     Route: 048
  3. PRAVASTATINA [Concomitant]
     Active Substance: PRAVASTATIN SODIUM
     Dosage: UNK
     Route: 048
  4. CALCIUM CARBONATE/COLECALCIFEROL [Concomitant]
     Dosage: UNK
     Route: 048
  5. SOLU-CORTEF [Suspect]
     Active Substance: HYDROCORTISONE SODIUM SUCCINATE
     Indication: ASTHMA
     Dosage: 100 MG, SINGLE
     Route: 042
     Dates: start: 20150812, end: 20150812
  6. BUDESONIDA [Concomitant]
     Indication: ASTHMA
     Dosage: UNK, AS NEEDED
     Route: 055
  7. TIOTROPIUM BROMIDE [Concomitant]
     Active Substance: TIOTROPIUM BROMIDE
     Dosage: UNK
     Route: 055
  8. SALBUTAMOL [Concomitant]
     Active Substance: ALBUTEROL
     Indication: ASTHMA
     Dosage: UNK, AS NEEDED
     Route: 055

REACTIONS (7)
  - Oxygen saturation decreased [Recovered/Resolved]
  - Dyspnoea [Recovered/Resolved]
  - Poor peripheral circulation [Recovered/Resolved]
  - Cyanosis [Recovered/Resolved]
  - Condition aggravated [Recovered/Resolved]
  - Respiratory arrest [Recovered/Resolved]
  - Cyanosis central [Recovered/Resolved]

NARRATIVE: CASE EVENT DATE: 20150812
